FAERS Safety Report 15291099 (Version 1)
Quarter: 2018Q3

REPORT INFORMATION
  Report Type: Spontaneous
  Country: DE (occurrence: DE)
  Receive Date: 20180817
  Receipt Date: 20180817
  Transmission Date: 20181010
  Serious: Yes (Hospitalization)
  Sender: FDA-Public Use
  Company Number: PHHY2018DE073110

PATIENT
  Sex: Female

DRUGS (37)
  1. DOXORUBICIN [Suspect]
     Active Substance: DOXORUBICIN
     Dosage: 64 MG, Q2W
     Route: 042
     Dates: start: 20180309, end: 20180309
  2. DOXORUBICIN [Suspect]
     Active Substance: DOXORUBICIN
     Dosage: 58 MG, Q2W
     Route: 042
     Dates: start: 20180426
  3. RITUXIMAB. [Suspect]
     Active Substance: RITUXIMAB
     Indication: B-CELL LYMPHOMA
     Dosage: 620 MG, Q2W (620 MG, EVERY 14 DAY FOR 15 DAY)
     Route: 042
     Dates: start: 20180130, end: 20180213
  4. METOCLOPRAMIDE. [Concomitant]
     Active Substance: METOCLOPRAMIDE
     Dosage: 10 MG, BID
     Route: 065
     Dates: start: 20180306
  5. OSELTAMIVIR [Concomitant]
     Active Substance: OSELTAMIVIR
     Indication: PRODUCT USED FOR UNKNOWN INDICATION
     Dosage: 75 MG, UNK
     Route: 065
     Dates: start: 20180219, end: 20180228
  6. RITUXIMAB. [Suspect]
     Active Substance: RITUXIMAB
     Dosage: 640 MG, Q2W
     Route: 042
     Dates: start: 20180308, end: 2018
  7. BISOPROLOL [Concomitant]
     Active Substance: BISOPROLOL
     Indication: TACHYCARDIA
     Dosage: 1.25 MG, QD
     Route: 065
     Dates: start: 20180213, end: 20180214
  8. FLUCONAZOLE. [Concomitant]
     Active Substance: FLUCONAZOLE
     Indication: PRODUCT USED FOR UNKNOWN INDICATION
     Dosage: 100 MG, UNK
     Route: 065
     Dates: start: 20180301, end: 20180305
  9. COLECALCIFEROL [Concomitant]
     Active Substance: CHOLECALCIFEROL
     Indication: VITAMIN D DEFICIENCY
     Dosage: 20000 IU, QD (2?0?0 ON THURSDAY)
     Route: 065
  10. PANTOPRAZOLE SODIUM. [Concomitant]
     Active Substance: PANTOPRAZOLE SODIUM
     Indication: PRODUCT USED FOR UNKNOWN INDICATION
     Dosage: 40 MG, QD
     Route: 048
     Dates: start: 20180213
  11. MACROGOL [Concomitant]
     Active Substance: POLYETHYLENE GLYCOLS
     Indication: CONSTIPATION
     Dosage: 1 DF, QD
     Route: 065
     Dates: start: 20180210
  12. VINCRISTINE [Suspect]
     Active Substance: VINCRISTINE
     Indication: B-CELL LYMPHOMA
     Dosage: 2.8 MG, Q2W
     Route: 042
     Dates: start: 20180131
  13. RITUXIMAB. [Suspect]
     Active Substance: RITUXIMAB
     Dosage: 590 MG, Q2W
     Route: 042
     Dates: start: 20180508
  14. TILIDIN [Concomitant]
     Active Substance: NALOXONE HYDROCHLORIDE\TILIDINE HYDROCHLORIDE
     Indication: HYPOKALAEMIA
     Dosage: 1 DF, QD
     Route: 065
     Dates: start: 20180301
  15. VANCOMYCIN [Concomitant]
     Active Substance: VANCOMYCIN
     Indication: PRODUCT USED FOR UNKNOWN INDICATION
     Dosage: 1 G, UNK
     Route: 065
     Dates: start: 20180217, end: 20180227
  16. PREDNISONE. [Suspect]
     Active Substance: PREDNISONE
     Dosage: 100 MG, Q2W
     Route: 048
     Dates: start: 20180425
  17. PREDNISONE. [Suspect]
     Active Substance: PREDNISONE
     Dosage: 100 MG, Q2W
     Route: 048
     Dates: start: 20180429
  18. CYCLOPHOSPHAMIDE. [Suspect]
     Active Substance: CYCLOPHOSPHAMIDE
     Dosage: 960 MG, Q2W
     Route: 042
     Dates: start: 20180309
  19. CYCLOPHOSPHAMIDE. [Suspect]
     Active Substance: CYCLOPHOSPHAMIDE
     Dosage: 880 MG, Q2W
     Route: 042
     Dates: start: 20180326
  20. PREDNISONE. [Suspect]
     Active Substance: PREDNISONE
     Indication: B-CELL LYMPHOMA
     Dosage: UNK UNK, ONCE/SINGLE (ONE TIME DOSE)
     Route: 048
     Dates: start: 20180213
  21. RITUXIMAB. [Suspect]
     Active Substance: RITUXIMAB
     Dosage: 590 MG, Q2W
     Route: 042
     Dates: start: 20180425, end: 20180425
  22. NYSTATIN. [Concomitant]
     Active Substance: NYSTATIN
     Indication: PRODUCT USED FOR UNKNOWN INDICATION
     Dosage: 1 OT, TID
     Route: 065
     Dates: start: 20180123
  23. DOXORUBICIN [Suspect]
     Active Substance: DOXORUBICIN
     Indication: B-CELL LYMPHOMA
     Dosage: 84 MG, Q2W
     Route: 042
     Dates: start: 20180131
  24. METOCLOPRAMIDE. [Concomitant]
     Active Substance: METOCLOPRAMIDE
     Indication: PRODUCT USED FOR UNKNOWN INDICATION
     Dosage: 10 MG, BID
     Route: 065
     Dates: start: 20180228
  25. PANTOPRAZOLE SODIUM. [Concomitant]
     Active Substance: PANTOPRAZOLE SODIUM
     Dosage: 40 MG, QD
     Route: 048
     Dates: start: 20180322
  26. CIPROFLOXACIN. [Concomitant]
     Active Substance: CIPROFLOXACIN
     Indication: PRODUCT USED FOR UNKNOWN INDICATION
     Dosage: 500 MG, QD
     Route: 065
     Dates: start: 20180131
  27. VINCRISTINE [Suspect]
     Active Substance: VINCRISTINE
     Dosage: 2.62 MG, Q2W
     Route: 042
     Dates: start: 20180503
  28. COLECALCIFEROL [Concomitant]
     Active Substance: CHOLECALCIFEROL
     Dosage: 20000 IU, FOR 5 DAYS (5 IN 1 DAY)
     Route: 048
  29. ENOXAPARIN SODIUM. [Concomitant]
     Active Substance: ENOXAPARIN SODIUM
     Indication: PRODUCT USED FOR UNKNOWN INDICATION
     Dosage: 1 OT, BID
     Route: 065
  30. ENOXAPARIN SODIUM. [Concomitant]
     Active Substance: ENOXAPARIN SODIUM
     Dosage: 60 MG, BID
     Route: 065
  31. TRIMETHOPRIM SULFA [Concomitant]
     Active Substance: TRIMETHOPRIM SULFATE
     Indication: PRODUCT USED FOR UNKNOWN INDICATION
     Dosage: 960 MG, QD
     Route: 065
     Dates: start: 20180131
  32. DIGOXIN. [Concomitant]
     Active Substance: DIGOXIN
     Indication: PRODUCT USED FOR UNKNOWN INDICATION
     Dosage: 25 MG, UNK
     Route: 065
     Dates: start: 20180219, end: 20180228
  33. NATRIUMPICOSULFAT [Concomitant]
     Indication: PRODUCT USED FOR UNKNOWN INDICATION
     Dosage: 15 DRP, QD
     Route: 048
     Dates: start: 20180213, end: 20180217
  34. CYCLOPHOSPHAMIDE. [Suspect]
     Active Substance: CYCLOPHOSPHAMIDE
     Indication: B-CELL LYMPHOMA
     Dosage: 1260 MG, Q2W
     Route: 042
     Dates: start: 20180131, end: 20180131
  35. PEGFILGRASTIM [Suspect]
     Active Substance: PEGFILGRASTIM
     Indication: B-CELL LYMPHOMA
     Dosage: 6 MG, Q2W
     Route: 058
     Dates: start: 20180202, end: 2018
  36. AMPHOTERICIN [Concomitant]
     Active Substance: AMPHOTERICIN B
     Indication: PRODUCT USED FOR UNKNOWN INDICATION
     Dosage: 1 OT, TID
     Route: 065
     Dates: start: 20180123
  37. ACICLOVIR [Concomitant]
     Active Substance: ACYCLOVIR
     Indication: PRODUCT USED FOR UNKNOWN INDICATION
     Dosage: 400 MG, QD
     Route: 065
     Dates: start: 20180131

REACTIONS (4)
  - Nausea [Unknown]
  - General physical health deterioration [Not Recovered/Not Resolved]
  - Infection [Recovered/Resolved]
  - Polyuria [Unknown]

NARRATIVE: CASE EVENT DATE: 2018
